FAERS Safety Report 10385554 (Version 2)
Quarter: 2014Q3

REPORT INFORMATION
  Report Type: Spontaneous
  Country: BR (occurrence: BR)
  Receive Date: 20140814
  Receipt Date: 20140814
  Transmission Date: 20150326
  Serious: Yes (Other)
  Sender: FDA-Public Use
  Company Number: BR-PFIZER INC-2014195661

PATIENT
  Age: 75 Year
  Sex: Female
  Weight: 75 kg

DRUGS (9)
  1. NOVOMIX [Concomitant]
     Active Substance: INSULIN ASPART
     Indication: DIABETES MELLITUS
     Dosage: 38 IU, DAILY (22 IU IN THE MORNING AND  8 IU AT LUNCH AND AT DINNER)
     Dates: start: 2004
  2. CLOPIDOGREL [Concomitant]
     Active Substance: CLOPIDOGREL BISULFATE
     Indication: COAGULOPATHY
     Dosage: 2 DF, 2 TABLETS A DAY
     Dates: start: 2010
  3. SUSTRATE [Concomitant]
     Active Substance: PROPATYL NITRATE
     Indication: CARDIAC DISORDER
     Dosage: 2 DF, 2 TABLETS A DAY
     Dates: start: 2010
  4. LOZEPREL [Concomitant]
     Active Substance: OMEPRAZOLE
     Indication: GASTRIC DISORDER
     Dosage: 20 MG (1 TABLET), DAILY
     Route: 048
     Dates: start: 2009
  5. AMYTRIL [Concomitant]
     Active Substance: AMITRIPTYLINE HYDROCHLORIDE
     Indication: AGITATION
     Dosage: 1 TABLET, DAILY
     Route: 048
  6. TORLOS [Concomitant]
     Indication: HYPERTENSION
     Dosage: 25 MG (1 TABLET), 2X/DAY
     Route: 048
  7. DETRUSITOL LA [Suspect]
     Active Substance: TOLTERODINE TARTRATE
     Indication: URINARY INCONTINENCE
     Dosage: 4 MG, 1 CAPSULE A DAY
     Route: 048
     Dates: start: 20140712
  8. DETRUSITOL LA [Suspect]
     Active Substance: TOLTERODINE TARTRATE
     Indication: BLADDER DISORDER
     Dosage: 4 MG (1 CAPSULE), DAILY
     Route: 048
     Dates: start: 2012
  9. ROXFLAN [Concomitant]
     Active Substance: AMLODIPINE BESYLATE
     Indication: HYPERTENSION
     Dosage: 5 MG (1 TABLET), 2X/DAY
     Route: 048

REACTIONS (4)
  - Expired product administered [Recovered/Resolved]
  - Streptococcal urinary tract infection [Unknown]
  - Drug ineffective [Unknown]
  - Drug dispensing error [Unknown]

NARRATIVE: CASE EVENT DATE: 2014
